FAERS Safety Report 7470850-6 (Version None)
Quarter: 2011Q2

REPORT INFORMATION
  Report Type: 
  Country: None (occurrence: None)
  Receive Date: 20110510
  Receipt Date: 20110429
  Transmission Date: 20111010
  Serious: Yes (Other)
  Sender: FDA-Public Use
  Company Number: US-JNJFOC-20110502653

PATIENT
  Age: 12 Year

DRUGS (2)
  1. TYLENOL (CAPLET) [Suspect]
  2. TYLENOL (CAPLET) [Suspect]
     Indication: PAIN
     Dosage: 12,350 MG OVER 13-14 HOURS

REACTIONS (3)
  - VOMITING [None]
  - ABDOMINAL PAIN [None]
  - ACCIDENTAL OVERDOSE [None]
